FAERS Safety Report 4416641-1 (Version None)
Quarter: 2004Q2

REPORT INFORMATION
  Report Type: 
  Country: None (occurrence: None)
  Receive Date: 20040630
  Receipt Date: 20040427
  Transmission Date: 20050107
  Serious: Yes (Hospitalization)
  Sender: FDA-Public Use
  Company Number: 04P-163-0259025-00

PATIENT
  Age: 72 Year
  Sex: Male
  Weight: 77.1115 kg

DRUGS (13)
  1. HUMIRA [Suspect]
     Indication: RHEUMATOID ARTHRITIS
     Dosage: 40 MG, 1 IN 2 WK, SUBCUTANEOUS
     Route: 058
     Dates: start: 20040201
  2. FOLIC ACID [Concomitant]
  3. LEVOTHYROXINE SODIUM [Concomitant]
  4. METOPROLOL [Concomitant]
  5. FOSINOPRIL SODIUM [Concomitant]
  6. IODINE [Concomitant]
  7. FISH OIL [Concomitant]
  8. SINEMET [Concomitant]
  9. CITALOPRAM HYDROBROMIDE [Concomitant]
  10. METHOTREXATE [Concomitant]
  11. LOVASTATIN [Concomitant]
  12. DETROL LA [Concomitant]
  13. OMEPRAZOLE [Concomitant]

REACTIONS (2)
  - FALL [None]
  - HIP FRACTURE [None]
